FAERS Safety Report 7232828-7 (Version None)
Quarter: 2011Q1

REPORT INFORMATION
  Report Type: 
  Country: None (occurrence: None)
  Receive Date: 20110110
  Receipt Date: 20101227
  Transmission Date: 20110831
  Serious: Yes (Other)
  Sender: FDA-Public Use
  Company Number: CTI_01287_2010

PATIENT
  Age: 69 Year
  Sex: Male

DRUGS (1)
  1. MEIACT (MEIACT MS (CEFDITOREN PIVOXIL) ) (NOT SPECIFIED) [Suspect]
     Indication: PRODUCT USED FOR UNKNOWN INDICATION
     Dosage: (DF ORAL)
     Route: 048
     Dates: start: 20090701, end: 20090701

REACTIONS (2)
  - LIVER DISORDER [None]
  - ACUTE GENERALISED EXANTHEMATOUS PUSTULOSIS [None]
